FAERS Safety Report 9002410 (Version 1)
Quarter: 2013Q1

REPORT INFORMATION
  Report Type: Spontaneous
  Country: US (occurrence: US)
  Receive Date: 20130107
  Receipt Date: 20130107
  Transmission Date: 20140127
  Serious: No
  Sender: FDA-Public Use
  Company Number: PHEH2013US000487

PATIENT
  Sex: Female

DRUGS (11)
  1. TASIGNA [Suspect]
     Dosage: 300 MG, BID
     Route: 048
  2. METFORMIN [Concomitant]
     Dosage: 500 MG, UNK
  3. LISINOPRIL [Concomitant]
     Dosage: 20 MG, UNK
  4. VENEX//VENLAFAXINE HYDROCHLORIDE [Concomitant]
     Dosage: 225 MG, UNK
  5. TRIAMTERENE AND HYDROCHLOROTHIAZID [Concomitant]
     Dosage: 37.5 MG, QD
  6. LITHIUM CARBONATE [Concomitant]
     Dosage: 300 MG, BID
  7. ZETIA [Concomitant]
     Dosage: 10 MG, QD
  8. ATORVASTATIN [Concomitant]
     Dosage: 40 MG, QD
  9. LEVOTHYROXINE [Concomitant]
     Dosage: 137 MG, QD
  10. ZOLPIDEM [Concomitant]
     Dosage: 10 MG, BID
  11. TYLENOL [Concomitant]
     Indication: HEADACHE

REACTIONS (2)
  - Drug administration error [Unknown]
  - Asthenia [Unknown]
